FAERS Safety Report 24380996 (Version 1)
Quarter: 2024Q3

REPORT INFORMATION
  Report Type: Report from Study
  Country: CA (occurrence: CA)
  Receive Date: 20240930
  Receipt Date: 20240930
  Transmission Date: 20241016
  Serious: Yes (Other)
  Sender: ABBVIE
  Company Number: CA-ABBVIE-5937452

PATIENT
  Sex: Male
  Weight: 79 kg

DRUGS (1)
  1. RINVOQ [Suspect]
     Active Substance: UPADACITINIB
     Indication: Crohn^s disease
     Dosage: FORM STRENGTH: 30 MILLIGRAM?ONCE A DAY
     Route: 048
     Dates: start: 20221126

REACTIONS (9)
  - Ileostomy [Unknown]
  - Crohn^s disease [Unknown]
  - Arthralgia [Unknown]
  - Peripheral swelling [Unknown]
  - Impaired work ability [Unknown]
  - Hair growth abnormal [Unknown]
  - Malaise [Unknown]
  - Asthenia [Unknown]
  - Social problem [Unknown]
